FAERS Safety Report 10263185 (Version 2)
Quarter: 2014Q2

REPORT INFORMATION
  Report Type: Report from Study
  Country: US (occurrence: US)
  Receive Date: 20140626
  Receipt Date: 20140626
  Transmission Date: 20141212
  Serious: Yes (Death)
  Sender: FDA-Public Use
  Company Number: US-MYLANLABS-2014S1005561

PATIENT
  Age: 50 Year
  Sex: Male
  Weight: 95.26 kg

DRUGS (10)
  1. CLOZAPINE TABLETS [Suspect]
     Dosage: 5 TIMES DAILY
     Route: 048
     Dates: start: 200606, end: 201401
  2. FENOFIBRATE [Concomitant]
  3. LEVOTHYROXINE [Concomitant]
  4. DOXYCYCLINE MONOHYDRATE [Concomitant]
  5. LORATADINE [Concomitant]
  6. VITAMIN B12 [Concomitant]
  7. LAMOTRIGINE [Concomitant]
  8. VITAMIN D2 [Concomitant]
  9. CRESTOR [Concomitant]
  10. FAMOTIDINE [Concomitant]

REACTIONS (1)
  - Death [Fatal]
